FAERS Safety Report 5323660-X (Version None)
Quarter: 2007Q2

REPORT INFORMATION
  Report Type: 
  Country: None (occurrence: None)
  Receive Date: 20070507
  Receipt Date: 20070423
  Transmission Date: 20071010
  Serious: Yes (Hospitalization)
  Sender: FDA-Public Use
  Company Number: 230007M07ISR

PATIENT
  Sex: Female

DRUGS (1)
  1. REBIF [Suspect]
     Indication: RELAPSING-REMITTING MULTIPLE SCLEROSIS
     Dosage: 22, 3 IN 1 WEEKS, SUBCUTANEOUS
     Route: 058
     Dates: start: 20030101, end: 20070401

REACTIONS (5)
  - ANKLE FRACTURE [None]
  - ARTERIOSCLEROSIS [None]
  - BALANCE DISORDER [None]
  - FALL [None]
  - INFLAMMATION OF WOUND [None]
